FAERS Safety Report 4387606-3 (Version None)
Quarter: 2004Q2

REPORT INFORMATION
  Report Type: 
  Country: None (occurrence: None)
  Receive Date: 20040630
  Receipt Date: 20040518
  Transmission Date: 20050107
  Serious: No
  Sender: FDA-Public Use
  Company Number: US-GLAXOSMITHKLINE-A0511301A

PATIENT
  Age: 78 Year
  Sex: Male

DRUGS (13)
  1. ADVAIR HFA [Suspect]
     Indication: ASTHMA
     Dosage: 250MG TWICE PER DAY
     Route: 055
  2. SEREVENT [Suspect]
     Indication: ASTHMA
     Route: 055
  3. FLOVENT [Suspect]
     Indication: ASTHMA
     Route: 055
  4. VERAPAMIL [Concomitant]
  5. NASAREL [Concomitant]
  6. VENTOLIN [Concomitant]
  7. GLUCOSAMINE [Concomitant]
  8. ASPIRIN [Concomitant]
  9. ZANTAC [Concomitant]
  10. HYTRIN [Concomitant]
  11. M.V.I. [Concomitant]
  12. DRIXORAL [Concomitant]
  13. ALLEGRA [Concomitant]

REACTIONS (2)
  - DRUG INEFFECTIVE [None]
  - MUSCLE CRAMP [None]
